FAERS Safety Report 20551509 (Version 2)
Quarter: 2022Q1

REPORT INFORMATION
  Report Type: Report from Study
  Country: CA (occurrence: CA)
  Receive Date: 20220304
  Receipt Date: 20220324
  Transmission Date: 20220423
  Serious: Yes (Other)
  Sender: FDA-Public Use
  Company Number: CA-JNJFOC-20211208394

PATIENT
  Age: 38 Year
  Sex: Male
  Weight: 129 kg

DRUGS (2)
  1. STELARA [Suspect]
     Active Substance: USTEKINUMAB
     Indication: Colitis ulcerative
     Route: 058
     Dates: start: 20201218
  2. STELARA [Suspect]
     Active Substance: USTEKINUMAB
     Dosage: ON 02-DEC-2021 PATIENT RECEIVED STELARA INJECTION.
     Route: 058
     Dates: start: 202111, end: 20220315

REACTIONS (9)
  - Haematochezia [Not Recovered/Not Resolved]
  - Epididymitis [Recovered/Resolved]
  - Treatment failure [Unknown]
  - Diarrhoea [Not Recovered/Not Resolved]
  - Defaecation urgency [Not Recovered/Not Resolved]
  - Abdominal pain upper [Not Recovered/Not Resolved]
  - Abnormal faeces [Not Recovered/Not Resolved]
  - Off label use [Unknown]
  - Product use issue [Unknown]

NARRATIVE: CASE EVENT DATE: 20211202
